FAERS Safety Report 16638204 (Version 2)
Quarter: 2019Q3

REPORT INFORMATION
  Report Type: Spontaneous
  Country: US (occurrence: US)
  Receive Date: 20190726
  Receipt Date: 20190829
  Transmission Date: 20191004
  Serious: No
  Sender: FDA-Public Use
  Company Number: US-JNJFOC-20190728175

PATIENT
  Age: 63 Year
  Sex: Male
  Weight: 123.26 kg

DRUGS (3)
  1. RISPERDAL CONSTA [Suspect]
     Active Substance: RISPERIDONE
     Route: 030
     Dates: start: 20170601
  2. RISPERDAL CONSTA [Suspect]
     Active Substance: RISPERIDONE
     Indication: SCHIZOPHRENIA
     Route: 030
     Dates: start: 20170421, end: 20170508
  3. RISPERDAL CONSTA [Suspect]
     Active Substance: RISPERIDONE
     Route: 030
     Dates: start: 20170508, end: 20170601

REACTIONS (3)
  - Product complaint [Unknown]
  - Therapy change [Unknown]
  - Product dose omission [Unknown]

NARRATIVE: CASE EVENT DATE: 20170421
